FAERS Safety Report 9239305 (Version 1)
Quarter: 2013Q2

REPORT INFORMATION
  Report Type: Spontaneous
  Country: US (occurrence: US)
  Receive Date: 20130418
  Receipt Date: 20130418
  Transmission Date: 20140414
  Serious: No
  Sender: FDA-Public Use
  Company Number: US-VERTEX PHARMACEUTICALS INC.-2013-004895

PATIENT
  Age: 59 Year
  Sex: Female
  Weight: 69 kg

DRUGS (9)
  1. INCIVEK [Suspect]
     Indication: HEPATITIS C
     Dosage: 1125 MG, TID
     Route: 048
     Dates: start: 20130227, end: 20130412
  2. INCIVEK [Suspect]
     Dosage: 750 MG, TID
     Route: 048
     Dates: start: 20130412
  3. PEGASYS [Suspect]
     Indication: HEPATITIS C
     Dosage: 180 ?G, QW
     Dates: start: 20130227
  4. RIBAVIRIN [Suspect]
     Indication: HEPATITIS C
     Dosage: 600MG AM, 600MG PM
     Dates: start: 20130227
  5. ZYPREXA [Concomitant]
     Dosage: 20 MG, QD
  6. POTASSIUM CHLORIDE [Concomitant]
     Dosage: 20 MEQ, QD
  7. ASPIRIN [Concomitant]
     Dosage: 81 MG, QD
  8. PERIDEX [Concomitant]
     Dosage: UNK, BID
  9. AMMONIUM LACTATE [Concomitant]
     Dosage: 12 %, BID

REACTIONS (1)
  - Incorrect dose administered [Recovered/Resolved]
